FAERS Safety Report 5154747-2 (Version None)
Quarter: 2006Q4

REPORT INFORMATION
  Report Type: 
  Country: None (occurrence: None)
  Receive Date: 20061115
  Receipt Date: 20061115
  Transmission Date: 20070319
  Serious: Yes (Hospitalization)
  Sender: FDA-Public Use
  Company Number: None

PATIENT
  Sex: Male
  Weight: 95.709 kg

DRUGS (9)
  1. TAXOTERE [Suspect]
     Indication: PROSTATE CANCER
     Dosage: 60 MG   D1,8,15  Q 28    IV BOLUS
     Route: 040
     Dates: start: 20060525, end: 20061026
  2. DOXIL [Suspect]
     Indication: PROSTATE CANCER
     Dosage: 60 MG   D 1 Q  28   IV BOLUS
     Route: 040
     Dates: start: 20060525, end: 20061012
  3. BENTYL [Concomitant]
  4. OXYCONTIN [Concomitant]
  5. LORTAB [Concomitant]
  6. PHENERGAN [Concomitant]
  7. RITALIN [Concomitant]
  8. PRILOSEC [Concomitant]
  9. METHADONE HCL [Concomitant]

REACTIONS (5)
  - MUCOSAL INFLAMMATION [None]
  - NAUSEA [None]
  - ORAL PAIN [None]
  - PHARYNGOLARYNGEAL PAIN [None]
  - VOMITING [None]
